FAERS Safety Report 9916947 (Version 2)
Quarter: 2014Q2

REPORT INFORMATION
  Report Type: Report from Study
  Country: CA (occurrence: CA)
  Receive Date: 20140221
  Receipt Date: 20140410
  Transmission Date: 20141212
  Serious: Yes (Hospitalization, Other)
  Sender: FDA-Public Use
  Company Number: CA-UCBSA-112966

PATIENT
  Age: 61 Year
  Sex: Male
  Weight: 66.3 kg

DRUGS (21)
  1. CIMZIA [Suspect]
     Indication: RHEUMATOID ARTHRITIS
     Route: 058
     Dates: start: 20130513, end: 20130607
  2. CIMZIA [Suspect]
     Indication: RHEUMATOID ARTHRITIS
     Route: 058
     Dates: start: 20130621, end: 20140120
  3. MTX [Concomitant]
     Indication: RHEUMATOID ARTHRITIS
     Route: 058
     Dates: start: 20111102
  4. PLAQUENIL [Concomitant]
     Indication: RHEUMATOID ARTHRITIS
     Route: 048
     Dates: start: 20111031
  5. NAPROSYN [Concomitant]
     Indication: RHEUMATOID ARTHRITIS
     Route: 048
  6. LOSARTAN [Concomitant]
     Indication: CARDIAC DISORDER
     Route: 048
  7. LOSARTAN [Concomitant]
     Indication: HYPERTENSION
     Route: 048
  8. LOSARTAN [Concomitant]
     Indication: GASTRIC DISORDER
     Route: 048
  9. LOSARTAN [Concomitant]
     Indication: BONE DISORDER
     Route: 048
  10. ASAPHEN [Concomitant]
     Indication: CARDIAC DISORDER
     Route: 048
  11. ASAPHEN [Concomitant]
     Indication: HYPERTENSION
     Route: 048
  12. ASAPHEN [Concomitant]
     Indication: GASTRIC DISORDER
     Route: 048
  13. ASAPHEN [Concomitant]
     Indication: BONE DISORDER
     Route: 048
  14. NEXIUM [Concomitant]
     Indication: HYPERTENSION
     Route: 048
  15. NEXIUM [Concomitant]
     Indication: CARDIAC DISORDER
     Route: 048
  16. NEXIUM [Concomitant]
     Indication: BONE DISORDER
     Route: 048
  17. NEXIUM [Concomitant]
     Indication: GASTRIC DISORDER
     Route: 048
  18. ACTONEL [Concomitant]
     Indication: HYPERTENSION
     Route: 048
  19. ACTONEL [Concomitant]
     Indication: CARDIAC DISORDER
     Route: 048
  20. ACTONEL [Concomitant]
     Indication: BONE DISORDER
     Route: 048
  21. ACTONEL [Concomitant]
     Indication: GASTRIC DISORDER
     Route: 048

REACTIONS (6)
  - Palpitations [Recovered/Resolved]
  - Burning sensation [Recovered/Resolved]
  - Rash [Not Recovered/Not Resolved]
  - Dizziness [Unknown]
  - Dyspnoea [Recovered/Resolved]
  - Hypoaesthesia [Unknown]
